FAERS Safety Report 7702023-3 (Version None)
Quarter: 2011Q3

REPORT INFORMATION
  Report Type: 
  Country: None (occurrence: None)
  Receive Date: 20110822
  Receipt Date: 20110818
  Transmission Date: 20111222
  Serious: Yes (Death)
  Sender: FDA-Public Use
  Company Number: PHHY2011JP74174

PATIENT
  Age: 65 Year
  Sex: Male

DRUGS (3)
  1. ZOMETA [Suspect]
     Indication: PROSTATE CANCER
     Dosage: UNK UKN, UNK
     Route: 041
  2. DOCETAXEL [Suspect]
     Dosage: 70 MG/M2, UNK
     Route: 042
     Dates: start: 20081101, end: 20090401
  3. PREDNISOLONE [Concomitant]
     Dosage: 10 MG, UNK
     Route: 048
     Dates: start: 20081101, end: 20090401

REACTIONS (1)
  - PNEUMONIA ASPIRATION [None]
